FAERS Safety Report 5700584-7 (Version None)
Quarter: 2008Q2

REPORT INFORMATION
  Report Type: 
  Country: None (occurrence: None)
  Receive Date: 20080409
  Receipt Date: 20080409
  Transmission Date: 20081010
  Serious: Yes (Hospitalization)
  Sender: FDA-Public Use
  Company Number: None

PATIENT
  Sex: Female
  Weight: 67.1324 kg

DRUGS (5)
  1. COUMADIN [Suspect]
     Indication: INTRAVENOUS CATHETER MANAGEMENT
     Dosage: 1 MG QD PO
     Route: 048
     Dates: end: 20080224
  2. COUMADIN [Suspect]
     Indication: PROPHYLAXIS
     Dosage: 1 MG QD PO
     Route: 048
     Dates: end: 20080224
  3. COUMADIN [Suspect]
     Indication: INTRAVENOUS CATHETER MANAGEMENT
     Dosage: 1 MG QD PO
     Route: 048
     Dates: start: 20080304
  4. COUMADIN [Suspect]
     Indication: PROPHYLAXIS
     Dosage: 1 MG QD PO
     Route: 048
     Dates: start: 20080304
  5. ARGINMAX / PLACEBO - STOPPED 02/15/2008 03/04 [Suspect]
     Dosage: 3 TABS BID PO NOT RESTARTED
     Route: 048
     Dates: end: 20080215

REACTIONS (2)
  - VULVAL ABSCESS [None]
  - WOUND DRAINAGE [None]
